FAERS Safety Report 8467451-X (Version None)
Quarter: 2012Q2

REPORT INFORMATION
  Report Type: 
  Country: None (occurrence: None)
  Receive Date: 20120626
  Receipt Date: 20120503
  Transmission Date: 20120825
  Serious: Yes (Hospitalization)
  Sender: FDA-Public Use
  Company Number: US-ASTRAZENECA-2012SE22866

PATIENT
  Age: 75 Year
  Sex: Male

DRUGS (5)
  1. OXYCODONE HCL [Concomitant]
     Indication: PAIN
     Route: 048
  2. IMODIUM [Concomitant]
     Indication: DIARRHOEA
     Route: 048
  3. CAPRELSA [Suspect]
     Indication: THYROID CANCER
     Route: 048
     Dates: start: 20120210
  4. LEVOTHYROXINE SODIUM [Concomitant]
     Indication: THYROID DISORDER
     Route: 048
  5. MULTI-VITAMINS [Concomitant]
     Indication: PROPHYLAXIS
     Route: 048

REACTIONS (3)
  - DIARRHOEA [None]
  - AGEUSIA [None]
  - WEIGHT DECREASED [None]
